FAERS Safety Report 4945611-X (Version None)
Quarter: 2006Q1

REPORT INFORMATION
  Report Type: 
  Country: None (occurrence: None)
  Receive Date: 20060316
  Receipt Date: 20050520
  Transmission Date: 20060701
  Serious: Yes (Death)
  Sender: FDA-Public Use
  Company Number: US-MERCK-0505USA02534

PATIENT
  Age: 44 Year
  Sex: Male
  Weight: 100 kg

DRUGS (4)
  1. VIOXX [Suspect]
     Indication: CLUSTER HEADACHE
     Route: 048
     Dates: start: 20020708, end: 20030522
  2. VIOXX [Suspect]
     Indication: MIGRAINE
     Route: 048
     Dates: start: 20020708, end: 20030522
  3. ASPIRIN [Concomitant]
     Route: 065
  4. CELEBREX [Concomitant]
     Route: 065
     Dates: start: 20020416

REACTIONS (3)
  - ARRHYTHMIA [None]
  - ARTERIOSCLEROSIS CORONARY ARTERY [None]
  - CARDIOMEGALY [None]
